FAERS Safety Report 14482163 (Version 7)
Quarter: 2020Q1

REPORT INFORMATION
  Report Type: Report from Study
  Country: US (occurrence: US)
  Receive Date: 20180202
  Receipt Date: 20200302
  Transmission Date: 20200409
  Serious: Yes (Other)
  Sender: FDA-Public Use
  Company Number: US-ACTELION-A-NJ2017-153984

PATIENT
  Age: 81 Year
  Sex: Female
  Weight: 52.15 kg

DRUGS (5)
  1. ADEMPAS [Suspect]
     Active Substance: RIOCIGUAT
     Indication: PRODUCT USED FOR UNKNOWN INDICATION
     Dosage: UNK
     Route: 065
  2. WARFARIN [Concomitant]
     Active Substance: WARFARIN
  3. OPSUMIT [Suspect]
     Active Substance: MACITENTAN
     Dosage: 10 UNK
     Route: 048
  4. OPSUMIT [Suspect]
     Active Substance: MACITENTAN
     Indication: PULMONARY ARTERIAL HYPERTENSION
     Dosage: 10 MG, QD
     Route: 048
  5. ADCIRCA [Concomitant]
     Active Substance: TADALAFIL

REACTIONS (12)
  - Gastrooesophageal reflux disease [Unknown]
  - Joint swelling [Unknown]
  - Renal disorder [Recovering/Resolving]
  - Weight decreased [Unknown]
  - Peripheral swelling [Unknown]
  - Malaise [Unknown]
  - Anaemia [Unknown]
  - Transfusion [Unknown]
  - Pulmonary oedema [Unknown]
  - Dyspnoea [Unknown]
  - Therapeutic product ineffective [Unknown]
  - Pneumonia [Unknown]

NARRATIVE: CASE EVENT DATE: 20190214
